FAERS Safety Report 10563264 (Version 1)
Quarter: 2014Q4

REPORT INFORMATION
  Report Type: Spontaneous
  Country: US (occurrence: US)
  Receive Date: 20141104
  Receipt Date: 20141104
  Transmission Date: 20150529
  Serious: Yes (Other)
  Sender: FDA-Public Use
  Company Number: US-PFIZER INC-2014303398

PATIENT
  Age: 59 Year
  Sex: Female
  Weight: 64.85 kg

DRUGS (1)
  1. SOLU-MEDROL [Suspect]
     Active Substance: METHYLPREDNISOLONE SODIUM SUCCINATE
     Indication: DYSPNOEA
     Dosage: 8ML VIAL CONTAINING ONE GRAM OF PRESERVATIVE FREE METHYLPREDNISOLONE SODIUM SUCCINATE, SINGLE
     Route: 030
     Dates: start: 201409, end: 201409

REACTIONS (7)
  - Urticaria [Recovering/Resolving]
  - Peripheral swelling [Recovering/Resolving]
  - Feeling abnormal [Recovering/Resolving]
  - Palmar erythema [Recovering/Resolving]
  - Rash [Not Recovered/Not Resolved]
  - Hypersensitivity [Recovering/Resolving]
  - Pruritus [Not Recovered/Not Resolved]

NARRATIVE: CASE EVENT DATE: 201409
